FAERS Safety Report 19827593 (Version 1)
Quarter: 2021Q3

REPORT INFORMATION
  Report Type: Spontaneous
  Country: ES (occurrence: ES)
  Receive Date: 20210914
  Receipt Date: 20210914
  Transmission Date: 20211014
  Serious: Yes (Other)
  Sender: FDA-Public Use
  Company Number: NVSC2021ES205455

PATIENT
  Age: 85 Year
  Sex: Female
  Weight: 81 kg

DRUGS (1)
  1. AMOXICILINA SANDOZ [Suspect]
     Active Substance: AMOXICILLIN
     Indication: SKIN ULCER
     Dosage: 500 MG, Q8H
     Route: 048
     Dates: start: 20210817, end: 20210820

REACTIONS (1)
  - International normalised ratio increased [Recovered/Resolved]

NARRATIVE: CASE EVENT DATE: 20210817
